FAERS Safety Report 7546319-7 (Version None)
Quarter: 2011Q2

REPORT INFORMATION
  Report Type: 
  Country: None (occurrence: None)
  Receive Date: 20110614
  Receipt Date: 20051019
  Transmission Date: 20111010
  Serious: Yes (Hospitalization)
  Sender: FDA-Public Use
  Company Number: PHNR2005AU01539

PATIENT
  Sex: Male

DRUGS (2)
  1. CLOZAPINE [Suspect]
     Dosage: 12-600 MG DAILY
     Dates: start: 19990930, end: 20051009
  2. CLOZAPINE [Suspect]
     Dates: start: 20051014

REACTIONS (2)
  - DYSPHAGIA [None]
  - CHEMICAL POISONING [None]
